FAERS Safety Report 6252260-2 (Version None)
Quarter: 2009Q2

REPORT INFORMATION
  Report Type: 
  Country: None (occurrence: None)
  Receive Date: 20090629
  Receipt Date: 20090611
  Transmission Date: 20091009
  Serious: Yes (Hospitalization)
  Sender: FDA-Public Use
  Company Number: 2009BI018308

PATIENT
  Age: 74 Year
  Sex: Female

DRUGS (15)
  1. ZEVALIN [Suspect]
     Indication: DIFFUSE LARGE B-CELL LYMPHOMA
     Dosage: 958 MBQ; 1X; IV
     Route: 042
     Dates: start: 20090402, end: 20090402
  2. ZEVALIN [Suspect]
     Indication: NON-HODGKIN'S LYMPHOMA
     Dosage: 958 MBQ; 1X; IV
     Route: 042
     Dates: start: 20090402, end: 20090402
  3. RITUXIMAB [Concomitant]
  4. METFORMIN HCL [Concomitant]
  5. THEOFYLLINE [Concomitant]
  6. PREDNISONE [Concomitant]
  7. PAROXETINE HCL [Concomitant]
  8. FLUCONAZOLE [Concomitant]
  9. PANTOZOL [Concomitant]
  10. FOSAMAX [Concomitant]
  11. LORAZEPAM [Concomitant]
  12. VENTOLIN [Concomitant]
  13. SERETIDE [Concomitant]
  14. ATACAND [Concomitant]
  15. SPIRIVA [Concomitant]

REACTIONS (4)
  - DEHYDRATION [None]
  - DIARRHOEA [None]
  - NAUSEA [None]
  - VOMITING [None]
